FAERS Safety Report 6409361-5 (Version None)
Quarter: 2009Q4

REPORT INFORMATION
  Report Type: 
  Country: None (occurrence: None)
  Receive Date: 20091021
  Receipt Date: 20091015
  Transmission Date: 20100525
  Serious: Yes (Hospitalization)
  Sender: FDA-Public Use
  Company Number: FR-BAXTER-2009BH016167

PATIENT
  Age: 55 Year
  Sex: Male
  Weight: 78 kg

DRUGS (16)
  1. HOLOXAN BAXTER [Interacting]
     Indication: NON-HODGKIN'S LYMPHOMA
     Route: 042
     Dates: start: 20090908, end: 20090909
  2. UROMITEXAN BAXTER [Suspect]
     Indication: NON-HODGKIN'S LYMPHOMA
     Route: 065
     Dates: start: 20090908, end: 20090908
  3. ETOPOSIDE [Suspect]
     Indication: DRUG USE FOR UNKNOWN INDICATION
     Route: 065
     Dates: start: 20090907, end: 20090907
  4. ETOPOSIDE [Suspect]
     Route: 065
     Dates: start: 20090908, end: 20090908
  5. ETOPOSIDE [Suspect]
     Route: 065
     Dates: start: 20090909, end: 20090909
  6. EMEND [Interacting]
     Indication: NON-HODGKIN'S LYMPHOMA
     Route: 048
     Dates: start: 20090908, end: 20090909
  7. EMEND [Interacting]
     Route: 048
     Dates: start: 20090907, end: 20090907
  8. FASTURTEC [Interacting]
     Indication: NON-HODGKIN'S LYMPHOMA
     Route: 042
     Dates: start: 20090906, end: 20090906
  9. FASTURTEC [Interacting]
     Route: 042
     Dates: start: 20090901, end: 20090901
  10. FASTURTEC [Interacting]
     Route: 042
     Dates: start: 20090902, end: 20090902
  11. FASTURTEC [Interacting]
     Route: 042
     Dates: start: 20090905, end: 20090905
  12. METHYLPREDNISOLONE [Suspect]
     Indication: DRUG USE FOR UNKNOWN INDICATION
     Route: 065
     Dates: start: 20090901, end: 20090903
  13. METHYLPREDNISOLONE [Suspect]
     Route: 065
     Dates: start: 20090904, end: 20090904
  14. MABTHERA [Suspect]
     Indication: DRUG USE FOR UNKNOWN INDICATION
     Route: 065
     Dates: start: 20090904, end: 20090905
  15. CARBOPLATIN [Suspect]
     Indication: DRUG USE FOR UNKNOWN INDICATION
     Route: 065
     Dates: start: 20090908, end: 20090908
  16. UROMITEXAN [Concomitant]
     Indication: NON-HODGKIN'S LYMPHOMA
     Route: 042
     Dates: start: 20090105, end: 20090109

REACTIONS (3)
  - DRUG INTERACTION [None]
  - ENCEPHALOPATHY [None]
  - PANCYTOPENIA [None]
